FAERS Safety Report 6128941-8 (Version None)
Quarter: 2009Q1

REPORT INFORMATION
  Report Type: 
  Country: None (occurrence: None)
  Receive Date: 20090324
  Receipt Date: 20090312
  Transmission Date: 20090719
  Serious: Yes (Disabling)
  Sender: FDA-Public Use
  Company Number: PHHY2009SE09269

PATIENT
  Sex: Male

DRUGS (5)
  1. RITALIN [Suspect]
     Indication: ATTENTION DEFICIT/HYPERACTIVITY DISORDER
     Dosage: 20 MG/DAY
     Dates: start: 20090108
  2. RITALIN [Suspect]
     Dosage: 40 MG/DAY
     Dates: start: 20090127
  3. RITALIN [Suspect]
     Dosage: 60 MG/DAY
     Dates: start: 20090215
  4. RITALIN [Suspect]
     Dosage: 20 MG(AT 6,7,8 AM + 40 MG AT NOON + 4 PM)
  5. RITALIN [Suspect]
     Dosage: UNK

REACTIONS (5)
  - ANXIETY [None]
  - DEPRESSED MOOD [None]
  - IMPAIRED WORK ABILITY [None]
  - NAUSEA [None]
  - STRESS [None]
